FAERS Safety Report 6162512-2 (Version None)
Quarter: 2009Q2

REPORT INFORMATION
  Report Type: 
  Country: None (occurrence: None)
  Receive Date: 20090417
  Receipt Date: 20090406
  Transmission Date: 20091009
  Serious: Yes (Hospitalization)
  Sender: FDA-Public Use
  Company Number: DSA_33487_2009

PATIENT
  Age: 59 Year
  Sex: Female

DRUGS (9)
  1. DICLOFENAC (DICLOFENAC) [Suspect]
     Indication: ARTHRALGIA
     Dosage: (DF)
  2. IMIDAPRIL (IMIDAPRIL) [Suspect]
     Indication: DRUG USE FOR UNKNOWN INDICATION
     Dosage: (DF)
  3. IMIDAPRIL [Concomitant]
  4. GLIPIZIDE [Concomitant]
  5. METFORMIN HCL [Concomitant]
  6. FENOFIBRATE [Concomitant]
  7. ATENOLOL [Concomitant]
  8. HYDROCHLOROTHIAZIDE [Concomitant]
  9. NIFEDIPINE [Concomitant]

REACTIONS (1)
  - ANGIOEDEMA [None]
